FAERS Safety Report 7364469-5 (Version None)
Quarter: 2011Q1

REPORT INFORMATION
  Report Type: 
  Country: None (occurrence: None)
  Receive Date: 20110321
  Receipt Date: 20110308
  Transmission Date: 20110831
  Serious: Yes (Hospitalization)
  Sender: FDA-Public Use
  Company Number: FR-TEVA-271909ISR

PATIENT
  Sex: Female
  Weight: 71 kg

DRUGS (12)
  1. ATORVASTATIN CALCIUM [Concomitant]
     Indication: HYPERCHOLESTEROLAEMIA
     Route: 048
     Dates: start: 20060101
  2. ESOMEPRAZOLE MAGNESIUM [Concomitant]
     Indication: GASTRITIS PROPHYLAXIS
     Route: 048
     Dates: start: 20100802
  3. ACEBUTOLOL [Concomitant]
     Indication: HYPERTENSION
     Route: 048
     Dates: start: 20080101
  4. CANDESARTAN CILEXETIL [Concomitant]
     Indication: HYPERTENSION
     Route: 048
     Dates: start: 20080101
  5. CANDESARTAN CILEXETIL [Concomitant]
     Indication: CORONARY ARTERY INSUFFICIENCY
  6. DEXAMETHASONE [Suspect]
     Indication: MULTIPLE MYELOMA
     Dates: start: 20100802
  7. JANUMET (SITAGLIPTIN/METFORMIN HYDROCHLORIDE) [Concomitant]
     Indication: DIABETES MELLITUS
     Route: 048
     Dates: start: 20100802
  8. LENALIDOMIDE [Suspect]
     Indication: MULTIPLE MYELOMA
     Route: 048
     Dates: start: 20100802
  9. DEXAMETHASONE [Suspect]
     Dates: start: 20101220
  10. LENALIDOMIDE [Suspect]
     Route: 048
     Dates: start: 20101220, end: 20110109
  11. ACEBUTOLOL [Concomitant]
     Indication: CORONARY ARTERY INSUFFICIENCY
  12. ACETYLSALICYLATE LYSINE [Concomitant]
     Indication: THROMBOSIS PROPHYLAXIS
     Route: 048
     Dates: start: 20070101

REACTIONS (2)
  - PYREXIA [None]
  - BRONCHITIS [None]
